FAERS Safety Report 15414932 (Version 2)
Quarter: 2018Q4

REPORT INFORMATION
  Report Type: Spontaneous
  Country: GB (occurrence: FR)
  Receive Date: 20180921
  Receipt Date: 20181018
  Transmission Date: 20190204
  Serious: Yes (Life-Threatening, Other)
  Sender: FDA-Public Use
  Company Number: FR-FRESENIUS KABI-FK201809677

PATIENT
  Age: 47 Year
  Sex: Male

DRUGS (14)
  1. CYCLOPHOSPHAMIDE. [Suspect]
     Active Substance: CYCLOPHOSPHAMIDE
     Indication: FOLLICLE CENTRE LYMPHOMA, FOLLICULAR GRADE I, II, III STAGE IV
     Route: 042
     Dates: start: 2000, end: 2001
  2. BENDAMUSTINE HYDROCHLORIDE (MANUFACTURER UNKOWN) [Suspect]
     Active Substance: BENDAMUSTINE HYDROCHLORIDE
     Indication: FOLLICLE CENTRE LYMPHOMA, FOLLICULAR GRADE I, II, III STAGE IV
     Route: 042
     Dates: start: 201309, end: 201402
  3. CARMUSTINE. [Suspect]
     Active Substance: CARMUSTINE
     Indication: FOLLICLE CENTRE LYMPHOMA, FOLLICULAR GRADE I, II, III STAGE IV
     Route: 042
     Dates: start: 20141113, end: 20141113
  4. MABTHERA [Suspect]
     Active Substance: RITUXIMAB
     Indication: FOLLICLE CENTRE LYMPHOMA, FOLLICULAR GRADE I, II, III STAGE IV
     Route: 042
     Dates: start: 201309, end: 201402
  5. CYTARABINE. [Suspect]
     Active Substance: CYTARABINE
     Indication: FOLLICLE CENTRE LYMPHOMA, FOLLICULAR GRADE I, II, III STAGE IV
     Route: 042
     Dates: start: 201409, end: 201410
  6. CYTARABINE. [Suspect]
     Active Substance: CYTARABINE
     Indication: FOLLICLE CENTRE LYMPHOMA, FOLLICULAR GRADE I, II, III STAGE IV
     Route: 042
     Dates: start: 20141114, end: 20141117
  7. INTRON A [Suspect]
     Active Substance: INTERFERON ALFA-2B
     Indication: FOLLICLE CENTRE LYMPHOMA, FOLLICULAR GRADE I, II, III STAGE IV
     Route: 058
     Dates: start: 2000, end: 2001
  8. OXALIPLATIN (MANUFACTURER UNKNOWN) [Suspect]
     Active Substance: OXALIPLATIN
     Indication: FOLLICLE CENTRE LYMPHOMA, FOLLICULAR GRADE I, II, III STAGE IV
     Route: 042
     Dates: start: 201409, end: 201410
  9. ETOPOSIDE. [Suspect]
     Active Substance: ETOPOSIDE
     Indication: FOLLICLE CENTRE LYMPHOMA, FOLLICULAR GRADE I, II, III STAGE IV
     Route: 042
     Dates: start: 20141114, end: 20171117
  10. ETOPOSIDE. [Suspect]
     Active Substance: ETOPOSIDE
     Indication: FOLLICLE CENTRE LYMPHOMA, FOLLICULAR GRADE I, II, III STAGE IV
     Route: 042
     Dates: start: 2000, end: 2001
  11. MABTHERA [Suspect]
     Active Substance: RITUXIMAB
     Indication: FOLLICLE CENTRE LYMPHOMA, FOLLICULAR GRADE I, II, III STAGE IV
     Route: 042
     Dates: start: 201409, end: 201410
  12. CYTARABINE. [Suspect]
     Active Substance: CYTARABINE
     Route: 065
  13. DOXORUBICIN [Suspect]
     Active Substance: DOXORUBICIN
     Indication: FOLLICLE CENTRE LYMPHOMA, FOLLICULAR GRADE I, II, III STAGE IV
     Route: 042
     Dates: start: 2000, end: 2001
  14. MELPHALAN. [Suspect]
     Active Substance: MELPHALAN
     Indication: FOLLICLE CENTRE LYMPHOMA, FOLLICULAR GRADE I, II, III STAGE IV
     Route: 065
     Dates: start: 20141118, end: 20141118

REACTIONS (2)
  - Myelodysplastic syndrome [Not Recovered/Not Resolved]
  - Off label use [Unknown]

NARRATIVE: CASE EVENT DATE: 201808
